FAERS Safety Report 14198402 (Version 1)
Quarter: 2017Q4

REPORT INFORMATION
  Report Type: Spontaneous
  Country: FR (occurrence: FR)
  Receive Date: 20171117
  Receipt Date: 20171117
  Transmission Date: 20180321
  Serious: Yes (Other)
  Sender: FDA-Public Use
  Company Number: FR-MERCK KGAA-2034469

PATIENT
  Age: 85 Year
  Sex: Female

DRUGS (1)
  1. NOVOTHYROX [Suspect]
     Active Substance: LEVOTHYROXINE SODIUM
     Indication: PRODUCT USED FOR UNKNOWN INDICATION

REACTIONS (5)
  - Suicidal ideation [Recovering/Resolving]
  - Abdominal pain upper [Recovering/Resolving]
  - Tremor [Recovering/Resolving]
  - Muscular weakness [Recovering/Resolving]
  - Asthenia [Recovering/Resolving]
